FAERS Safety Report 22266824 (Version 3)
Quarter: 2023Q2

REPORT INFORMATION
  Report Type: Report from Study
  Country: AU (occurrence: AU)
  Receive Date: 20230428
  Receipt Date: 20230628
  Transmission Date: 20230721
  Serious: Yes (Hospitalization)
  Sender: FDA-Public Use
  Company Number: AU-002147023-NVSC2023AU093451

PATIENT
  Age: 55 Year
  Sex: Female
  Weight: 105.8 kg

DRUGS (10)
  1. KISQALI [Suspect]
     Active Substance: RIBOCICLIB
     Indication: Neoplasm
     Dosage: 400 MG
     Route: 048
     Dates: start: 20230124
  2. LETROZOLE [Suspect]
     Active Substance: LETROZOLE
     Indication: Neoplasm
     Dosage: 2.5 MG
     Route: 048
     Dates: start: 20230124, end: 20230413
  3. DOCUSATE SODIUM\SENNOSIDES A AND B [Concomitant]
     Active Substance: DOCUSATE SODIUM\SENNOSIDES A AND B
     Indication: Chronic disease
     Dosage: 1 TABLET, PRN
     Route: 048
     Dates: start: 2019
  4. ESOMEPRAZOLE [Concomitant]
     Active Substance: ESOMEPRAZOLE
     Indication: Chronic disease
     Dosage: 40 MG, QD
     Route: 048
     Dates: start: 2019
  5. NASONEX [Concomitant]
     Active Substance: MOMETASONE FUROATE
     Indication: Chronic disease
     Dosage: 1 SPRAY, QD
     Route: 045
     Dates: start: 20220221
  6. ACETAMINOPHEN [Concomitant]
     Active Substance: ACETAMINOPHEN
     Indication: Chronic disease
     Dosage: 1 G, PRN
     Route: 048
     Dates: start: 20220228
  7. METOPROLOL [Concomitant]
     Active Substance: METOPROLOL
     Indication: Chronic disease
     Dosage: 25 MG, BID
     Route: 048
     Dates: start: 20220428
  8. METFORMIN [Concomitant]
     Active Substance: METFORMIN HYDROCHLORIDE
     Indication: Chronic disease
     Dosage: 500 MG, BID
     Route: 048
     Dates: start: 20220722
  9. MAGNESIUM [Concomitant]
     Active Substance: MAGNESIUM
     Indication: Chronic disease
     Dosage: 1000 MG, TID
     Route: 048
     Dates: start: 20230109
  10. ENOXAPARIN [Concomitant]
     Active Substance: ENOXAPARIN
     Indication: Chronic disease
     Dosage: 100 MG, BID
     Route: 058
     Dates: start: 20230117

REACTIONS (2)
  - Neutrophil count decreased [Recovered/Resolved]
  - Diarrhoea [Recovered/Resolved]

NARRATIVE: CASE EVENT DATE: 20230414
